FAERS Safety Report 9041227 (Version 1)
Quarter: 2013Q1

REPORT INFORMATION
  Report Type: Spontaneous
  Country: US (occurrence: None)
  Receive Date: 20130114
  Receipt Date: 20130114
  Transmission Date: 20140127
  Serious: Yes (Other)
  Sender: FDA-Public Use
  Company Number: KAD201301-000043

PATIENT
  Age: 58 Year
  Sex: 0

DRUGS (4)
  1. RIBAVIRIN (RIBAVIRIN) [Suspect]
     Indication: CHRONIC HEPATITIS C
  2. RIBAVIRIN (RIBAVIRIN) [Suspect]
     Indication: CRYOGLOBULINAEMIA
  3. INTERFERON ALFACON-1 (INTERFERON ALFACON-1) [Suspect]
     Indication: CHRONIC HEPATITIS C
  4. INTERFERON ALFACON-1 (INTERFERON ALFACON-1) [Suspect]
     Indication: CRYOGLOBULINAEMIA

REACTIONS (3)
  - Cryoglobulinaemia [None]
  - Renal failure acute [None]
  - Glomerulonephritis membranoproliferative [None]
